FAERS Safety Report 4533375-3 (Version None)
Quarter: 2004Q4

REPORT INFORMATION
  Report Type: 
  Country: None (occurrence: None)
  Receive Date: 20041210
  Receipt Date: 20040826
  Transmission Date: 20050328
  Serious: No
  Sender: FDA-Public Use
  Company Number: A03200402967

PATIENT

DRUGS (2)
  1. ELOXATIN [Suspect]
     Dosage: INTRAVENOUS NOS
     Route: 042
  2. LEUCOVORIN [Concomitant]

REACTIONS (1)
  - STRIDOR [None]
